FAERS Safety Report 25047185 (Version 1)
Quarter: 2025Q1

REPORT INFORMATION
  Report Type: Spontaneous
  Country: HU (occurrence: HU)
  Receive Date: 20250306
  Receipt Date: 20250306
  Transmission Date: 20250409
  Serious: Yes (Other)
  Sender: ABBVIE
  Company Number: HU-ABBVIE-6158782

PATIENT
  Sex: Female

DRUGS (1)
  1. RINVOQ [Suspect]
     Active Substance: UPADACITINIB
     Indication: Psoriatic arthropathy
     Route: 048

REACTIONS (6)
  - Ear infection bacterial [Unknown]
  - Ear inflammation [Unknown]
  - Otitis externa [Unknown]
  - Ear pain [Unknown]
  - Ear infection fungal [Unknown]
  - Ear disorder [Unknown]
